FAERS Safety Report 5106049-8 (Version None)
Quarter: 2006Q3

REPORT INFORMATION
  Report Type: 
  Country: None (occurrence: None)
  Receive Date: 20060915
  Receipt Date: 20060519
  Transmission Date: 20061208
  Serious: Yes (Hospitalization)
  Sender: FDA-Public Use
  Company Number: FR-ABBOTT-06P-056-0333937-00

PATIENT
  Age: 35 Year
  Sex: Male

DRUGS (4)
  1. ZECLAR TABLETS [Suspect]
     Indication: SYNOVIAL CYST
     Route: 048
     Dates: start: 20060127, end: 20060130
  2. ZECLAR TABLETS [Suspect]
     Indication: PYREXIA
  3. ZECLAR TABLETS [Suspect]
     Indication: PHARYNGOLARYNGEAL PAIN
  4. CEFPODOXIME PROXETIL [Suspect]
     Indication: DRUG USE FOR UNKNOWN INDICATION
     Route: 048
     Dates: start: 20060130, end: 20060201

REACTIONS (7)
  - COUGH [None]
  - ERYTHEMA MULTIFORME [None]
  - INFECTION [None]
  - MYCOSIS FUNGOIDES [None]
  - PYREXIA [None]
  - RASH [None]
  - VASCULITIS [None]
